FAERS Safety Report 16260396 (Version 1)
Quarter: 2019Q2

REPORT INFORMATION
  Report Type: Spontaneous
  Country: JP (occurrence: JP)
  Receive Date: 20190501
  Receipt Date: 20190501
  Transmission Date: 20190711
  Serious: Yes (Other)
  Sender: FDA-Public Use
  Company Number: JP-AMGEN-JPNSP2019069202

PATIENT

DRUGS (1)
  1. RANMARK [Suspect]
     Active Substance: DENOSUMAB
     Indication: BONE GIANT CELL TUMOUR
     Dosage: UNK
     Route: 065

REACTIONS (5)
  - Vertebral column mass [Unknown]
  - Tumour invasion [Unknown]
  - Spinal compression fracture [Unknown]
  - Tumour cell mobilisation [Unknown]
  - Bone callus excessive [Unknown]
